FAERS Safety Report 18631225 (Version 1)
Quarter: 2020Q4

REPORT INFORMATION
  Report Type: Spontaneous
  Country: US (occurrence: US)
  Receive Date: 20201217
  Receipt Date: 20201217
  Transmission Date: 20210114
  Serious: No
  Sender: FDA-Public Use
  Company Number: US-ENDO PHARMACEUTICALS INC-2020-001464

PATIENT
  Age: 65 Year
  Sex: Male
  Weight: 99.77 kg

DRUGS (2)
  1. XIAFLEX [Suspect]
     Active Substance: COLLAGENASE CLOSTRIDIUM HISTOLYTICUM
     Indication: PEYRONIE^S DISEASE
     Dosage: UNK UNKNOWN, CYCLE 1, INJECTION 1
     Route: 065
     Dates: start: 20200203
  2. XIAFLEX [Suspect]
     Active Substance: COLLAGENASE CLOSTRIDIUM HISTOLYTICUM
     Dosage: UNK UNKNOWN, CYCLE 1, INJECTION 2
     Route: 065
     Dates: start: 20200205

REACTIONS (7)
  - Injection site pain [Recovered/Resolved]
  - Penile haematoma [Not Recovered/Not Resolved]
  - Penile contusion [Recovered/Resolved]
  - Penile erythema [Not Recovered/Not Resolved]
  - Wrong technique in product usage process [Unknown]
  - Blood blister [Recovered/Resolved]
  - Penile pain [Unknown]

NARRATIVE: CASE EVENT DATE: 202002
